FAERS Safety Report 4305043-4 (Version None)
Quarter: 2004Q1

REPORT INFORMATION
  Report Type: 
  Country: None (occurrence: None)
  Receive Date: 20040225
  Receipt Date: 20040225
  Transmission Date: 20041129
  Serious: Yes (Hospitalization)
  Sender: FDA-Public Use
  Company Number: None

PATIENT
  Age: 44 Year
  Sex: Female
  Weight: 75 kg

DRUGS (7)
  1. DIDANOSINE [Suspect]
     Indication: HIV INFECTION
     Dosage: 400 MG PO QD
     Route: 048
  2. STAVUDINE [Suspect]
     Indication: HIV INFECTION
     Dosage: 10 MG PO BID
     Route: 048
  3. BACTRIM DS [Concomitant]
  4. RANITIDINE [Concomitant]
  5. AMITRIPTYLINE HCL [Concomitant]
  6. SUCRALFATE [Concomitant]
  7. LISINOPRIL [Concomitant]

REACTIONS (2)
  - LACTIC ACIDOSIS [None]
  - PANCREATITIS [None]
